FAERS Safety Report 22106498 (Version 1)
Quarter: 2023Q1

REPORT INFORMATION
  Report Type: Spontaneous
  Country: US (occurrence: US)
  Receive Date: 20230317
  Receipt Date: 20230317
  Transmission Date: 20230417
  Serious: Yes (Death, Hospitalization, Other)
  Sender: FDA-Public Use
  Company Number: US-SANOFI-01525469

PATIENT
  Age: 74 Year
  Sex: Male

DRUGS (1)
  1. LOVENOX [Suspect]
     Active Substance: ENOXAPARIN SODIUM
     Dosage: 250 MG, QD (A DAY)

REACTIONS (6)
  - Mouth haemorrhage [Fatal]
  - Haematochezia [Fatal]
  - Drug hypersensitivity [Unknown]
  - Erythema [Unknown]
  - Crying [Unknown]
  - Anaphylactic reaction [Fatal]
